FAERS Safety Report 7740619-3 (Version None)
Quarter: 2011Q3

REPORT INFORMATION
  Report Type: 
  Country: None (occurrence: None)
  Receive Date: 20110909
  Receipt Date: 20110902
  Transmission Date: 20111222
  Serious: Yes (Other)
  Sender: FDA-Public Use
  Company Number: PR-PFIZER INC-2007085401

PATIENT
  Sex: Female
  Weight: 104.54 kg

DRUGS (8)
  1. NEURONTIN [Concomitant]
  2. NEXIUM [Concomitant]
  3. CHANTIX [Suspect]
     Indication: SMOKING CESSATION THERAPY
     Dosage: EVERYDAY
     Route: 048
     Dates: start: 20070801, end: 20071009
  4. GLUCOPHAGE [Concomitant]
  5. KLONOPIN [Concomitant]
  6. ZOCOR [Concomitant]
  7. VALSARTAN [Concomitant]
     Indication: BLOOD PRESSURE
  8. GLUCOTROL [Concomitant]
     Indication: DIABETES MELLITUS

REACTIONS (6)
  - NAUSEA [None]
  - WEIGHT DECREASED [None]
  - INSOMNIA [None]
  - NIGHTMARE [None]
  - DECREASED APPETITE [None]
  - ANGER [None]
